FAERS Safety Report 6305354-7 (Version None)
Quarter: 2009Q3

REPORT INFORMATION
  Report Type: 
  Country: None (occurrence: None)
  Receive Date: 20090811
  Receipt Date: 20090730
  Transmission Date: 20100115
  Serious: Yes (Other)
  Sender: FDA-Public Use
  Company Number: US-WYE-H10401609

PATIENT
  Sex: Female
  Weight: 103.51 kg

DRUGS (4)
  1. PRISTIQ [Suspect]
     Indication: DEPRESSION
     Route: 048
     Dates: start: 20090101
  2. ALLOPURINOL [Concomitant]
     Dosage: UNKNOWN
  3. SYNTHROID [Concomitant]
     Dosage: UNKNOWN
  4. BENICAR [Concomitant]
     Dosage: UNKNOWN

REACTIONS (1)
  - DEEP VEIN THROMBOSIS [None]
